FAERS Safety Report 5561973-7 (Version None)
Quarter: 2007Q4

REPORT INFORMATION
  Report Type: 
  Country: None (occurrence: None)
  Receive Date: 20071215
  Receipt Date: 20071003
  Transmission Date: 20080405
  Serious: No
  Sender: FDA-Public Use
  Company Number: US-AMGEN-KDL246264

PATIENT
  Sex: Female

DRUGS (2)
  1. ENBREL [Suspect]
     Indication: RHEUMATOID ARTHRITIS
     Route: 058
     Dates: start: 20070925
  2. METHOTREXATE [Concomitant]
     Route: 048
     Dates: start: 20070101

REACTIONS (5)
  - ACNE [None]
  - ERYTHEMA [None]
  - EYE PRURITUS [None]
  - FEELING HOT [None]
  - PAIN [None]
